FAERS Safety Report 12192662 (Version 1)
Quarter: 2016Q1

REPORT INFORMATION
  Report Type: Report from Study
  Country: BR (occurrence: BR)
  Receive Date: 20160318
  Receipt Date: 20160318
  Transmission Date: 20160526
  Serious: Yes (Other)
  Sender: FDA-Public Use
  Company Number: BR-ABBVIE-16K-020-1582437-00

PATIENT
  Age: 70 Year
  Sex: Female
  Weight: 64 kg

DRUGS (3)
  1. HUMIRA [Suspect]
     Active Substance: ADALIMUMAB
     Route: 058
     Dates: start: 20120723, end: 201506
  2. DIPYRONE [Concomitant]
     Active Substance: DIPYRONE
     Indication: PAIN
     Route: 048
  3. HUMIRA [Suspect]
     Active Substance: ADALIMUMAB
     Indication: RHEUMATOID ARTHRITIS
     Route: 058

REACTIONS (11)
  - Lumbar vertebral fracture [Recovering/Resolving]
  - Helicobacter infection [Recovered/Resolved]
  - Peripheral swelling [Unknown]
  - Fall [Unknown]
  - Pain in extremity [Unknown]
  - Gait disturbance [Unknown]
  - Crying [Unknown]
  - Nerve injury [Recovering/Resolving]
  - Osteoarthritis [Unknown]
  - Varicose vein [Unknown]
  - Exposure to contaminated water [Unknown]

NARRATIVE: CASE EVENT DATE: 20160309
